FAERS Safety Report 13279991 (Version 1)
Quarter: 2017Q1

REPORT INFORMATION
  Report Type: Spontaneous
  Country: US (occurrence: US)
  Receive Date: 20170228
  Receipt Date: 20170228
  Transmission Date: 20170428
  Serious: Yes (Hospitalization, Disabling)
  Sender: FDA-Public Use
  Company Number: None

PATIENT
  Age: 19 Year
  Sex: Male
  Weight: 99 kg

DRUGS (4)
  1. CIPROXINA XR (CIPROFLOXACINE) [Suspect]
     Active Substance: CIPROFLOXACIN HYDROCHLORIDE
     Indication: PSEUDOMONAS INFECTION
     Dosage: ?          QUANTITY:1 TABLET(S);?
     Route: 048
     Dates: start: 20170227, end: 20170227
  2. VALERIAN ROOT EXTRACT [Concomitant]
  3. CIPROXINA XR (CIPROFLOXACINE) [Suspect]
     Active Substance: CIPROFLOXACIN HYDROCHLORIDE
     Indication: SKIN INFECTION
     Dosage: ?          QUANTITY:1 TABLET(S);?
     Route: 048
     Dates: start: 20170227, end: 20170227
  4. FINASTERIDE. [Concomitant]
     Active Substance: FINASTERIDE

REACTIONS (10)
  - Anxiety [None]
  - Abasia [None]
  - Dyspnoea [None]
  - Blood pressure increased [None]
  - Pruritus [None]
  - Lip swelling [None]
  - Tendonitis [None]
  - Feeling abnormal [None]
  - Headache [None]
  - Palpitations [None]

NARRATIVE: CASE EVENT DATE: 20170227
